FAERS Safety Report 13124150 (Version 2)
Quarter: 2020Q4

REPORT INFORMATION
  Report Type: Other
  Country: JP (occurrence: JP)
  Receive Date: 20170118
  Receipt Date: 20201007
  Transmission Date: 20210113
  Serious: Yes (Other)
  Sender: FDA-Public Use
  Company Number: JP-ROCHE-1877420

PATIENT

DRUGS (4)
  1. FLUOROURACIL. [Suspect]
     Active Substance: FLUOROURACIL
     Indication: COLORECTAL CANCER
     Route: 065
  2. LEUCOVORIN. [Suspect]
     Active Substance: LEUCOVORIN
     Indication: COLORECTAL CANCER
     Route: 065
  3. BEVACIZUMAB. [Suspect]
     Active Substance: BEVACIZUMAB
     Indication: COLORECTAL CANCER
     Route: 065
  4. IRINOTECAN [Suspect]
     Active Substance: IRINOTECAN
     Indication: COLORECTAL CANCER
     Route: 065

REACTIONS (16)
  - Vomiting [Unknown]
  - Haemorrhage [Unknown]
  - Gastrointestinal perforation [Unknown]
  - Stomatitis [Unknown]
  - Proteinuria [Unknown]
  - Neutropenia [Unknown]
  - Infection [Unknown]
  - Anaemia [Unknown]
  - Febrile neutropenia [Unknown]
  - Thrombocytopenia [Unknown]
  - Decreased appetite [Unknown]
  - Nausea [Unknown]
  - Fatigue [Unknown]
  - Leukopenia [Unknown]
  - Diarrhoea [Unknown]
  - Pneumonitis [Unknown]
